FAERS Safety Report 6321564-7 (Version None)
Quarter: 2009Q3

REPORT INFORMATION
  Report Type: 
  Country: None (occurrence: None)
  Receive Date: 20090819
  Receipt Date: 20090803
  Transmission Date: 20100115
  Serious: Yes (Other)
  Sender: FDA-Public Use
  Company Number: DSA_40578_2009

PATIENT
  Age: 69 Year
  Sex: Female

DRUGS (13)
  1. DILTIAZEM HYDROCHLORIDE [Suspect]
     Indication: DRUG USE FOR UNKNOWN INDICATION
     Dosage: DF
  2. BUDESONIDE [Suspect]
     Indication: DRUG USE FOR UNKNOWN INDICATION
     Dosage: 1600 UG QD
  3. THEOPHYLLINE [Concomitant]
  4. TERBUTALINE SULFATE [Concomitant]
  5. INSULIN [Concomitant]
  6. METOPROLOL [Concomitant]
  7. MOLSIDOMINE [Concomitant]
  8. RANITIDINE [Concomitant]
  9. ENALAPRIL MALEATE [Concomitant]
  10. ATORVASTATIN [Concomitant]
  11. DICLOFENAC [Concomitant]
  12. CLOMIPRAMINE HCL [Concomitant]
  13. FLECAINIDE ACETATE [Concomitant]

REACTIONS (2)
  - ADRENAL INSUFFICIENCY [None]
  - CUSHING'S SYNDROME [None]
